FAERS Safety Report 12339872 (Version 1)
Quarter: 2016Q2

REPORT INFORMATION
  Report Type: Spontaneous
  Country: US (occurrence: US)
  Receive Date: 20160506
  Receipt Date: 20160506
  Transmission Date: 20160815
  Serious: Yes (Death, Other)
  Sender: FDA-Public Use
  Company Number: US-CIPLA LTD.-2016US04343

PATIENT

DRUGS (2)
  1. LEVOFLOXACIN. [Suspect]
     Active Substance: LEVOFLOXACIN
     Dosage: UNK
     Route: 065
  2. METHOTREXATE [Suspect]
     Active Substance: METHOTREXATE
     Indication: RHEUMATOID ARTHRITIS
     Dosage: UNK
     Route: 065

REACTIONS (8)
  - Legionella infection [Unknown]
  - Hypotension [Unknown]
  - Cardiac arrest [Fatal]
  - General physical health deterioration [None]
  - Pneumothorax [Unknown]
  - Lymphopenia [Unknown]
  - Drug ineffective [Unknown]
  - Hypoxia [Unknown]
